FAERS Safety Report 14941292 (Version 5)
Quarter: 2018Q4

REPORT INFORMATION
  Report Type: Spontaneous
  Country: BR (occurrence: BR)
  Receive Date: 20180526
  Receipt Date: 20181114
  Transmission Date: 20190204
  Serious: Yes (Hospitalization, Other)
  Sender: FDA-Public Use
  Company Number: BR-AMGEN-BRASP2018053479

PATIENT
  Age: 53 Year
  Sex: Male

DRUGS (3)
  1. ENBREL [Suspect]
     Active Substance: ETANERCEPT
     Indication: ANKYLOSING SPONDYLITIS
     Dosage: 50 MG, QWK
     Route: 065
     Dates: start: 201711, end: 2018
  2. ENBREL [Suspect]
     Active Substance: ETANERCEPT
     Dosage: UNK
     Route: 065
     Dates: start: 20180321
  3. GLUCOSAMIN + CHONDROITIN [Concomitant]
     Dosage: UNK
     Dates: start: 201803

REACTIONS (9)
  - Drug effect incomplete [Not Recovered/Not Resolved]
  - Injury associated with device [Recovered/Resolved]
  - Astigmatism [Unknown]
  - Puncture site haemorrhage [Recovered/Resolved]
  - Wound [Recovered/Resolved]
  - Gastrointestinal disorder [Unknown]
  - Injection site pain [Not Recovered/Not Resolved]
  - Myopia [Unknown]
  - Inflammatory bowel disease [Recovered/Resolved]

NARRATIVE: CASE EVENT DATE: 2018
